FAERS Safety Report 4697049-0 (Version None)
Quarter: 2005Q2

REPORT INFORMATION
  Report Type: 
  Country: None (occurrence: None)
  Receive Date: 20050620
  Receipt Date: 20050504
  Transmission Date: 20051028
  Serious: No
  Sender: FDA-Public Use
  Company Number: US-YAMANOUCHI-YPA20050244

PATIENT
  Age: 77 Year
  Sex: Female
  Weight: 63.5036 kg

DRUGS (4)
  1. VESICARE [Suspect]
     Indication: HYPERTONIC BLADDER
     Dosage: 5 MG QD PO
     Route: 048
     Dates: start: 20050401
  2. ASTHMA INHALER [Concomitant]
  3. EYE DROPS [Concomitant]
  4. OVERACTIVE BLADDER MEDICATION [Concomitant]

REACTIONS (2)
  - ASTHENIA [None]
  - MUSCULOSKELETAL STIFFNESS [None]
